FAERS Safety Report 5857397-5 (Version None)
Quarter: 2008Q3

REPORT INFORMATION
  Report Type: 
  Country: None (occurrence: None)
  Receive Date: 20080825
  Receipt Date: 20080825
  Transmission Date: 20090109
  Serious: Yes (Death)
  Sender: FDA-Public Use
  Company Number: None

PATIENT
  Sex: Male
  Weight: 97.5234 kg

DRUGS (1)
  1. SORAFINIB 400MG [Suspect]
     Indication: RENAL CANCER
     Dosage: 400MG ONCE DAILY PO
     Route: 048
     Dates: start: 20080813, end: 20080817

REACTIONS (19)
  - ABASIA [None]
  - ACIDOSIS [None]
  - CHEST PAIN [None]
  - COAGULOPATHY [None]
  - DEEP VEIN THROMBOSIS [None]
  - DRUG INTERACTION [None]
  - DYSPNOEA [None]
  - HAEMATOCRIT DECREASED [None]
  - HAEMOGLOBIN DECREASED [None]
  - HYPOTENSION [None]
  - HYPOVOLAEMIC SHOCK [None]
  - INTERNATIONAL NORMALISED RATIO INCREASED [None]
  - OEDEMA PERIPHERAL [None]
  - PAIN IN EXTREMITY [None]
  - PALLOR [None]
  - RETROPERITONEAL HAEMATOMA [None]
  - TACHYCARDIA [None]
  - URINE OUTPUT DECREASED [None]
  - WEIGHT BEARING DIFFICULTY [None]
